FAERS Safety Report 13887657 (Version 1)
Quarter: 2017Q3

REPORT INFORMATION
  Report Type: Spontaneous
  Country: US (occurrence: US)
  Receive Date: 20170821
  Receipt Date: 20170821
  Transmission Date: 20171127
  Serious: No
  Sender: FDA-Public Use
  Company Number: US-ROCHE-775595

PATIENT
  Age: 48 Year
  Sex: Female
  Weight: 102.5 kg

DRUGS (15)
  1. METHOTREXATE SODIUM. [Concomitant]
     Active Substance: METHOTREXATE SODIUM
     Dosage: STRENGTH 2.5 MG?8 WK, 28 DAYS
     Route: 065
  2. FOLIC ACID. [Concomitant]
     Active Substance: FOLIC ACID
     Dosage: 2QD 30 DAYS
     Route: 065
  3. PPD [Concomitant]
     Active Substance: TUBERCULIN PURIFIED PROTEIN DERIVATIVE
     Dosage: 30 DAYS
     Route: 065
  4. MEDROL [Concomitant]
     Active Substance: METHYLPREDNISOLONE
     Dosage: UD 7 DAYS
     Route: 065
  5. DARVOCET-N 100 [Concomitant]
     Active Substance: ACETAMINOPHEN\PROPOXYPHENE NAPSYLATE
     Dosage: TAKEN AS NEEDED
     Route: 065
  6. BENADRYL [Concomitant]
     Active Substance: DIPHENHYDRAMINE HYDROCHLORIDE
     Indication: PREMEDICATION
     Route: 042
  7. ACTEMRA [Suspect]
     Active Substance: TOCILIZUMAB
     Indication: RHEUMATOID ARTHRITIS
     Dosage: STRENGTHS: 80MG/4ML SOLUTION, 200MG/10ML SOLUTION.
     Route: 042
     Dates: start: 20110329, end: 20110329
  8. LYRICA [Concomitant]
     Active Substance: PREGABALIN
     Route: 065
  9. PREDNISONE. [Concomitant]
     Active Substance: PREDNISONE
     Dosage: UUD 30 DAYS
     Route: 065
  10. METHOTREXATE SODIUM. [Concomitant]
     Active Substance: METHOTREXATE SODIUM
     Dosage: STRENGTH:25MG/ML?FORM: INJECTION?30 DAYS
     Route: 065
  11. ACTEMRA [Suspect]
     Active Substance: TOCILIZUMAB
     Dosage: DOSING AMOUNT AS PER 4 MG/KG?FORM: INFUSION
     Route: 042
     Dates: start: 20110422, end: 20110422
  12. INSULIN [Concomitant]
     Active Substance: INSULIN NOS
     Dosage: BD INSULIN?SYRINGE 29G X 1/2^ 1?UD 30 DAYS
     Route: 065
  13. RELAFEN [Concomitant]
     Active Substance: NABUMETONE
     Dosage: 30 DAYS
     Route: 065
  14. TOPROL XL [Concomitant]
     Active Substance: METOPROLOL SUCCINATE
     Route: 065
  15. ASA [Concomitant]
     Active Substance: ASPIRIN
     Dosage: DRUG NAME: ASA BUFF (MAG CARB-AL GLYC) 325?TAKEN DAILY
     Route: 065

REACTIONS (1)
  - Musculoskeletal pain [Recovered/Resolved]

NARRATIVE: CASE EVENT DATE: 20110422
